FAERS Safety Report 20760361 (Version 9)
Quarter: 2023Q1

REPORT INFORMATION
  Report Type: Other
  Country: US (occurrence: US)
  Receive Date: 20220428
  Receipt Date: 20230207
  Transmission Date: 20230417
  Serious: No
  Sender: FDA-Public Use
  Company Number: US-DECIPHERA PHARMACEUTICALS LLC-2022US000326

PATIENT
  Sex: Male
  Weight: 60 kg

DRUGS (13)
  1. QINLOCK [Suspect]
     Active Substance: RIPRETINIB
     Indication: Gastrointestinal stromal tumour
     Dosage: 150 MILLIGRAM, QD
     Route: 048
     Dates: start: 20220406
  2. QINLOCK [Suspect]
     Active Substance: RIPRETINIB
     Dosage: 150 MILLIGRAM, QD
     Route: 048
  3. COVID-19 VACCINE NOS [Suspect]
     Active Substance: COVID-19 VACCINE NOS
     Indication: COVID-19
     Dosage: UNK
  4. NEURONTIN [Concomitant]
     Active Substance: GABAPENTIN
     Indication: Product used for unknown indication
     Dosage: 100 MILLIGRAM, Q8H
     Route: 048
     Dates: start: 20220429
  5. BENTYL [Concomitant]
     Active Substance: DICYCLOMINE HYDROCHLORIDE
     Indication: Abdominal pain
     Dosage: 10 MILLIGRAM, Q8H
     Route: 048
     Dates: start: 20220422, end: 20220522
  6. NORCO [Concomitant]
     Active Substance: ACETAMINOPHEN\HYDROCODONE BITARTRATE
     Indication: Pain
     Dosage: UNK, TID
     Route: 048
     Dates: start: 20220421
  7. PROTONIX [Concomitant]
     Active Substance: PANTOPRAZOLE SODIUM
     Indication: Product used for unknown indication
     Dosage: 40 MILLIGRAM, QD
     Route: 048
     Dates: start: 20220322
  8. NORVASC [Concomitant]
     Active Substance: AMLODIPINE BESYLATE
     Indication: Product used for unknown indication
     Dosage: 5 MILLIGRAM, QD
     Route: 048
     Dates: start: 20220304
  9. PROCHLORPERAZINE EDISYLATE [Concomitant]
     Active Substance: PROCHLORPERAZINE EDISYLATE
     Indication: Product used for unknown indication
     Dosage: 10 MILLIGRAM, Q8H
     Route: 048
     Dates: start: 20220128
  10. ZOFRAN [Concomitant]
     Active Substance: ONDANSETRON HYDROCHLORIDE
     Indication: Nausea
     Dosage: 8 MILLIGRAM, Q8H
     Route: 048
     Dates: start: 20211216
  11. CRESTOR [Concomitant]
     Active Substance: ROSUVASTATIN CALCIUM
     Indication: Product used for unknown indication
     Dosage: 20 MILLIGRAM, QD
     Route: 048
  12. VITAMIN C [Concomitant]
     Active Substance: ASCORBIC ACID
     Indication: Product used for unknown indication
     Dosage: UNK
  13. VITAMIN B12 [Concomitant]
     Active Substance: CYANOCOBALAMIN
     Indication: Product used for unknown indication
     Dosage: UNK

REACTIONS (23)
  - Glossodynia [Unknown]
  - Pallor [Unknown]
  - Blister [Not Recovered/Not Resolved]
  - Tooth disorder [Unknown]
  - Oropharyngeal discomfort [Unknown]
  - Pain in extremity [Unknown]
  - Burning sensation [Unknown]
  - Dizziness [Unknown]
  - Night sweats [Unknown]
  - Hair growth abnormal [Unknown]
  - Hyperhidrosis [Unknown]
  - Influenza [Unknown]
  - Burning sensation [Unknown]
  - Adverse drug reaction [Unknown]
  - Hypotension [Unknown]
  - Dry throat [Unknown]
  - Abdominal pain [Unknown]
  - Hyperkeratosis [Not Recovered/Not Resolved]
  - Constipation [Recovered/Resolved]
  - Fatigue [Unknown]
  - Melanocytic naevus [Not Recovered/Not Resolved]
  - Anaemia [Unknown]
  - Weight decreased [Recovering/Resolving]

NARRATIVE: CASE EVENT DATE: 20220101
